FAERS Safety Report 16914356 (Version 11)
Quarter: 2021Q1

REPORT INFORMATION
  Report Type: Spontaneous
  Country: US (occurrence: US)
  Receive Date: 20191014
  Receipt Date: 20210107
  Transmission Date: 20210419
  Serious: Yes (Hospitalization, Other)
  Sender: FDA-Public Use
  Company Number: US-PFIZER INC-2019012326

PATIENT
  Age: 66 Year
  Sex: Female
  Weight: 68.04 kg

DRUGS (9)
  1. DILANTIN [Suspect]
     Active Substance: PHENYTOIN
     Indication: SEIZURE
     Dosage: 50 MG, 1X/DAY (EVERY NIGHT AT BED TIME, QUANTITY FOR 90 DAYS;250 MG TOTAL OF DILANTIN DAILY)
     Dates: start: 1981
  2. VITAMIN D [COLECALCIFEROL] [Concomitant]
     Active Substance: CHOLECALCIFEROL
     Dosage: UNK
  3. OMEGA 3 [FISH OIL] [Concomitant]
     Active Substance: FISH OIL
     Dosage: UNK
  4. DILANTIN [Suspect]
     Active Substance: PHENYTOIN
     Indication: SEIZURE
     Dosage: 100 MG, 2X/DAY (ONCE IN MORNING AND ONCE AT NIGHT; 250 MG TOTAL OF DILANTIN DAILY)(1 Q 12 HOURS)
     Dates: start: 1981
  5. VITAMIN B [Concomitant]
     Active Substance: VITAMIN B
     Dosage: UNK
  6. PHENOBARBITAL. [Concomitant]
     Active Substance: PHENOBARBITAL
     Dosage: 32.4 MG, DAILY (16.2 MG, TWO AT NIGHT, ALONG WITH DILANTIN)
  7. KEPPRA [Concomitant]
     Active Substance: LEVETIRACETAM
     Indication: SEIZURE
     Dosage: UNK
     Dates: start: 2007
  8. FOLIC ACID. [Concomitant]
     Active Substance: FOLIC ACID
     Dosage: UNK
  9. PHENOBARBITAL. [Concomitant]
     Active Substance: PHENOBARBITAL
     Dosage: 15.2 MG
     Dates: start: 1981

REACTIONS (6)
  - Multiple allergies [Not Recovered/Not Resolved]
  - Abdominal discomfort [Unknown]
  - Dysphonia [Unknown]
  - Weight increased [Unknown]
  - Dizziness [Recovered/Resolved]
  - Cataract [Recovered/Resolved]

NARRATIVE: CASE EVENT DATE: 2007
